FAERS Safety Report 18381775 (Version 1)
Quarter: 2020Q4

REPORT INFORMATION
  Report Type: Spontaneous
  Country: US (occurrence: US)
  Receive Date: 20201014
  Receipt Date: 20201014
  Transmission Date: 20210114
  Serious: No
  Sender: FDA-Public Use
  Company Number: US-BRISTOL-MYERS SQUIBB COMPANY-BMS-2020-085342

PATIENT
  Sex: Female
  Weight: 79.38 kg

DRUGS (1)
  1. APIXABAN [Suspect]
     Active Substance: APIXABAN
     Indication: HIP ARTHROPLASTY
     Dosage: UNK
     Route: 065

REACTIONS (1)
  - Burning sensation [Unknown]
